FAERS Safety Report 12074459 (Version 1)
Quarter: 2016Q1

REPORT INFORMATION
  Report Type: Spontaneous
  Country: ES (occurrence: ES)
  Receive Date: 20160212
  Receipt Date: 20160212
  Transmission Date: 20160526
  Serious: Yes (Other)
  Sender: FDA-Public Use
  Company Number: ES-VIIV HEALTHCARE LIMITED-ES2016GSK018873

PATIENT
  Age: 28 Year
  Sex: Male

DRUGS (7)
  1. ATAZANAVIR [Concomitant]
     Active Substance: ATAZANAVIR
     Dosage: UNK
  2. METAMIZOLE [Concomitant]
     Active Substance: METAMIZOLE
     Indication: OROPHARYNGITIS FUNGAL
  3. EMTRICITABINE [Concomitant]
     Active Substance: EMTRICITABINE
     Indication: HIV INFECTION
  4. TENOFOVIR [Concomitant]
     Active Substance: TENOFOVIR
     Indication: HIV INFECTION
  5. FLUCONAZOLE. [Concomitant]
     Active Substance: FLUCONAZOLE
     Indication: OROPHARYNGITIS FUNGAL
  6. RITONAVIR. [Concomitant]
     Active Substance: RITONAVIR
     Indication: HIV INFECTION
  7. ABACAVIR. [Suspect]
     Active Substance: ABACAVIR
     Indication: HIV INFECTION
     Dosage: UNK PATCH TEST WITH ABACAVIR 10 PERCENT IN DIMETHYL SULFOXIDE
     Dates: start: 2005

REACTIONS (15)
  - Application site folliculitis [Recovered/Resolved]
  - Stevens-Johnson syndrome [Recovered/Resolved]
  - Skin lesion [Recovered/Resolved]
  - Malaise [Unknown]
  - Application site pustules [Recovered/Resolved]
  - Secondary syphilis [Unknown]
  - Application site papules [Recovered/Resolved]
  - Oedema [Recovered/Resolved]
  - Application site necrosis [Recovered/Resolved]
  - Type IV hypersensitivity reaction [Recovering/Resolving]
  - HLA-B*5701 assay positive [Unknown]
  - Skin test positive [Unknown]
  - Application site erythema [Recovered/Resolved]
  - Pyrexia [Unknown]
  - Rash maculo-papular [Unknown]

NARRATIVE: CASE EVENT DATE: 2005
